FAERS Safety Report 7381908-4 (Version None)
Quarter: 2011Q1

REPORT INFORMATION
  Report Type: 
  Country: None (occurrence: None)
  Receive Date: 20110329
  Receipt Date: 20110316
  Transmission Date: 20110831
  Serious: Yes (Other)
  Sender: FDA-Public Use
  Company Number: KR-ELI_LILLY_AND_COMPANY-KR201103005224

PATIENT

DRUGS (1)
  1. GEMZAR [Suspect]
     Indication: OVARIAN CANCER
     Dosage: UNK

REACTIONS (5)
  - BRONCHOSPASM [None]
  - DYSPNOEA [None]
  - ANGIOEDEMA [None]
  - HYPERSENSITIVITY [None]
  - SHOCK [None]
